FAERS Safety Report 19327104 (Version 1)
Quarter: 2021Q2

REPORT INFORMATION
  Report Type: Spontaneous
  Country: CA (occurrence: CA)
  Receive Date: 20210528
  Receipt Date: 20210528
  Transmission Date: 20210717
  Serious: Yes (Other)
  Sender: FDA-Public Use
  Company Number: CA-TEVA-2021-CA-1915855

PATIENT
  Age: 58 Year
  Sex: Male

DRUGS (1)
  1. QUETIAPINE. [Suspect]
     Active Substance: QUETIAPINE
     Indication: PRODUCT USED FOR UNKNOWN INDICATION
     Route: 048

REACTIONS (9)
  - Drooling [Unknown]
  - Gait disturbance [Unknown]
  - Grimacing [Unknown]
  - Communication disorder [Unknown]
  - Emotional distress [Unknown]
  - Facial paralysis [Unknown]
  - Urinary incontinence [Unknown]
  - Muscle twitching [Unknown]
  - Somnolence [Unknown]
